FAERS Safety Report 6130929-8 (Version None)
Quarter: 2009Q1

REPORT INFORMATION
  Report Type: 
  Country: None (occurrence: None)
  Receive Date: 20090323
  Receipt Date: 20090311
  Transmission Date: 20090719
  Serious: Yes (Hospitalization)
  Sender: FDA-Public Use
  Company Number: 2009-193056-NL

PATIENT
  Age: 28 Year
  Sex: Female

DRUGS (3)
  1. GONADOTROPINS [Suspect]
     Dosage: DF
  2. GONADOTROPINE [Suspect]
     Dosage: DF
  3. CLOMIFENE CITRATE [Concomitant]

REACTIONS (4)
  - CHLAMYDIAL INFECTION [None]
  - DRUG EXPOSURE BEFORE PREGNANCY [None]
  - ECTOPIC PREGNANCY [None]
  - OVARIAN ADHESION [None]
